FAERS Safety Report 9753648 (Version 1)
Quarter: 2013Q4

REPORT INFORMATION
  Report Type: Spontaneous
  Country: FR (occurrence: None)
  Receive Date: 20131211
  Receipt Date: 20131211
  Transmission Date: 20140711
  Serious: Yes (Hospitalization)
  Sender: FDA-Public Use
  Company Number: DSM-2013-01155

PATIENT
  Age: 65 Year
  Sex: Male

DRUGS (1)
  1. SEVIKAR [Suspect]
     Indication: HYPERTENSION
     Dosage: 1 DOSAGE FORMS (1 DOSAGE FORMS, 1 IN 1 D), ORAL

REACTIONS (3)
  - Pancreatitis acute [None]
  - Hypercholesterolaemia [None]
  - Hypertriglyceridaemia [None]
